FAERS Safety Report 23970369 (Version 1)
Quarter: 2024Q2

REPORT INFORMATION
  Report Type: Spontaneous
  Country: IT (occurrence: IT)
  Receive Date: 20240613
  Receipt Date: 20240613
  Transmission Date: 20240715
  Serious: Yes (Other)
  Sender: FDA-Public Use
  Company Number: IT-MINISAL02-988671

PATIENT
  Age: 74 Year
  Sex: Male

DRUGS (4)
  1. CARBOPLATIN [Suspect]
     Active Substance: CARBOPLATIN
     Indication: Non-small cell lung cancer
     Dosage: 350 MILLIGRAM, CYCLICAL
     Route: 042
     Dates: start: 20240506, end: 20240506
  2. GEMCITABINE [Suspect]
     Active Substance: GEMCITABINE
     Indication: Non-small cell lung cancer
     Dosage: 1700 MILLIGRAM, CYCLICAL
     Route: 042
     Dates: start: 20240506, end: 20240506
  3. IPILIMUMAB [Suspect]
     Active Substance: IPILIMUMAB
     Indication: Non-small cell lung cancer
     Dosage: 63 MILLIGRAM, CYCLICAL
     Route: 042
     Dates: start: 20240506, end: 20240506
  4. NIVOLUMAB [Suspect]
     Active Substance: NIVOLUMAB
     Indication: Non-small cell lung cancer
     Dosage: 360 MILLIGRAM, CYCLICAL
     Route: 042
     Dates: start: 20240506, end: 20240506

REACTIONS (2)
  - Thrombocytopenia [Unknown]
  - Hypertransaminasaemia [Unknown]

NARRATIVE: CASE EVENT DATE: 20240513
